FAERS Safety Report 15164535 (Version 2)
Quarter: 2018Q3

REPORT INFORMATION
  Report Type: Report from Study
  Country: IT (occurrence: IT)
  Receive Date: 20180719
  Receipt Date: 20180927
  Transmission Date: 20181010
  Serious: Yes (Hospitalization)
  Sender: FDA-Public Use
  Company Number: IT-TEVA-2018-IT-927422

PATIENT
  Age: 68 Year
  Sex: Female

DRUGS (8)
  1. FLUXUM 4.250 U.I. AXA SOLUZIONE INIETTABILE IN SIRINGA PRERIEMPITA [Suspect]
     Active Substance: PARNAPARIN SODIUM
     Indication: MITRAL VALVE REPLACEMENT
     Dosage: 8500 IU (INTERNATIONAL UNIT) DAILY;
     Route: 058
     Dates: start: 20170305, end: 20170312
  2. COUMADIN [Suspect]
     Active Substance: WARFARIN SODIUM
     Indication: MITRAL VALVE REPLACEMENT
     Route: 048
     Dates: start: 20100101, end: 20170305
  3. LASIX [Concomitant]
     Active Substance: FUROSEMIDE
     Dosage: 25 MILLIGRAM DAILY;
     Route: 048
     Dates: start: 20100101, end: 20170312
  4. TRIATEC 10 MG COMPRESSE [Concomitant]
     Indication: HYPERTENSION
     Dosage: 10 MILLIGRAM DAILY;
     Route: 048
     Dates: start: 20100101, end: 20170312
  5. PROVISACOR 10 MG COMPRESSE RIVESTITE CON FILM [Concomitant]
     Indication: HYPERTENSION
     Dosage: 10 MILLIGRAM DAILY;
     Route: 048
     Dates: start: 20100101, end: 20170312
  6. AMOXICILLIN TRIHYDRATE [Suspect]
     Active Substance: AMOXICILLIN
     Indication: MITRAL VALVE REPLACEMENT
     Dosage: 2 GRAM DAILY;
     Route: 048
     Dates: start: 20170305, end: 20170312
  7. CORDARONE [Concomitant]
     Active Substance: AMIODARONE HYDROCHLORIDE
     Indication: ATRIAL FIBRILLATION
     Dosage: 200 MILLIGRAM DAILY;
     Route: 048
     Dates: start: 20100101, end: 20170312
  8. ALDACTONE 25 MG CAPSULE RIGIDE [Concomitant]
     Indication: HYPERTENSION
     Dosage: 25 MILLIGRAM DAILY;
     Route: 048
     Dates: start: 20100101, end: 20170312

REACTIONS (1)
  - Gingival bleeding [Recovering/Resolving]

NARRATIVE: CASE EVENT DATE: 20170312
